FAERS Safety Report 10560661 (Version 4)
Quarter: 2015Q4

REPORT INFORMATION
  Report Type: Report from Study
  Country: JP (occurrence: JP)
  Receive Date: 20141103
  Receipt Date: 20151019
  Transmission Date: 20160304
  Serious: Yes (Hospitalization)
  Sender: FDA-Public Use
  Company Number: JP-EISAI MEDICAL RESEARCH-E2080-00757-SOL-JP

PATIENT
  Age: 27 Year
  Sex: Male
  Weight: 62 kg

DRUGS (19)
  1. INOVELON [Suspect]
     Active Substance: RUFINAMIDE
     Route: 048
     Dates: start: 20131019, end: 20131028
  2. INOVELON [Suspect]
     Active Substance: RUFINAMIDE
     Route: 048
     Dates: start: 20140215, end: 20140612
  3. INOVELON [Suspect]
     Active Substance: RUFINAMIDE
     Indication: LENNOX-GASTAUT SYNDROME
     Route: 048
     Dates: start: 20130726, end: 20130819
  4. INOVELON [Suspect]
     Active Substance: RUFINAMIDE
     Route: 048
     Dates: start: 20130820, end: 20130823
  5. TEGRETOL [Concomitant]
     Active Substance: CARBAMAZEPINE
  6. INOVELON [Suspect]
     Active Substance: RUFINAMIDE
     Route: 048
     Dates: start: 20131029, end: 20131115
  7. INOVELON [Suspect]
     Active Substance: RUFINAMIDE
     Dosage: 100 MG IN MORNING; 600 MG AT NIGHT
     Route: 048
     Dates: start: 20131116, end: 20131118
  8. INOVELON [Suspect]
     Active Substance: RUFINAMIDE
     Route: 048
     Dates: start: 20131214, end: 20140206
  9. INOVELON [Suspect]
     Active Substance: RUFINAMIDE
     Route: 048
     Dates: start: 20140207, end: 20140214
  10. DEPAKENE [Concomitant]
     Active Substance: VALPROIC ACID
  11. INOVELON [Suspect]
     Active Substance: RUFINAMIDE
     Route: 048
     Dates: start: 20130927, end: 20131004
  12. INOVELON [Suspect]
     Active Substance: RUFINAMIDE
     Route: 048
     Dates: start: 20131005, end: 20131018
  13. TOPINA [Suspect]
     Active Substance: TOPIRAMATE
     Indication: LENNOX-GASTAUT SYNDROME
     Route: 048
  14. TELEMINSOFT [Concomitant]
  15. MYOSTAN [Concomitant]
  16. INOVELON [Suspect]
     Active Substance: RUFINAMIDE
     Route: 048
     Dates: start: 20131119, end: 20131213
  17. INOVELON [Suspect]
     Active Substance: RUFINAMIDE
     Route: 048
     Dates: start: 20140613
  18. GASTER [Concomitant]
     Active Substance: FAMOTIDINE
  19. MAALOX ANTACID [Concomitant]
     Active Substance: ALUMINUM HYDROXIDE\DIMETHICONE\MAGNESIUM HYDROXIDE

REACTIONS (5)
  - Hypoalbuminaemia [Recovered/Resolved]
  - Seizure cluster [Recovered/Resolved]
  - Decreased appetite [Recovered/Resolved]
  - Weight decreased [Recovered/Resolved]
  - Pharyngitis [Recovered/Resolved]

NARRATIVE: CASE EVENT DATE: 20131027
